FAERS Safety Report 13150369 (Version 2)
Quarter: 2017Q1

REPORT INFORMATION
  Report Type: Spontaneous
  Country: JP (occurrence: JP)
  Receive Date: 20170125
  Receipt Date: 20170213
  Transmission Date: 20170428
  Serious: Yes (Other)
  Sender: FDA-Public Use
  Company Number: JP-JNJFOC-20170120820

PATIENT
  Age: 53 Year
  Sex: Male
  Weight: 68 kg

DRUGS (6)
  1. TENELIA [Suspect]
     Active Substance: TENELIGLIPTIN
     Indication: TYPE 2 DIABETES MELLITUS
     Route: 048
     Dates: start: 20150420
  2. CANAGLU [Suspect]
     Active Substance: CANAGLIFLOZIN
     Indication: TYPE 2 DIABETES MELLITUS
     Route: 048
     Dates: start: 20140911, end: 20170112
  3. LAXOBERON [Concomitant]
     Active Substance: SODIUM PICOSULFATE
     Route: 048
     Dates: start: 20141007
  4. CANAGLU [Suspect]
     Active Substance: CANAGLIFLOZIN
     Indication: TYPE 2 DIABETES MELLITUS
     Route: 048
     Dates: start: 20170127
  5. PARIET [Concomitant]
     Active Substance: RABEPRAZOLE SODIUM
     Route: 048
     Dates: start: 201607
  6. FLUVASTATIN SODIUM. [Concomitant]
     Active Substance: FLUVASTATIN SODIUM
     Route: 048
     Dates: start: 20100812

REACTIONS (1)
  - Ketonuria [Recovered/Resolved]

NARRATIVE: CASE EVENT DATE: 20170112
